FAERS Safety Report 4556433-6 (Version None)
Quarter: 2005Q1

REPORT INFORMATION
  Report Type: 
  Country: None (occurrence: None)
  Receive Date: 20050114
  Receipt Date: 20050103
  Transmission Date: 20050727
  Serious: Yes (Other)
  Sender: FDA-Public Use
  Company Number: 202690

PATIENT
  Age: 55 Year
  Sex: Male
  Weight: 69.8539 kg

DRUGS (11)
  1. AVONEX [Suspect]
     Indication: MULTIPLE SCLEROSIS
     Dosage: 30  UG;QW;IM
     Route: 030
     Dates: start: 20021001, end: 20040101
  2. AVONEX [Suspect]
     Dosage: 30 UG;QW;IM
     Route: 030
     Dates: start: 20040101
  3. WELLBUTRIN [Concomitant]
  4. MULTI-VITAMINS [Concomitant]
  5. SAW PALMETTO [Concomitant]
  6. BACLOFEN [Concomitant]
  7. PRILOSEC [Concomitant]
  8. ASPIRIN [Concomitant]
  9. RANITIDINE [Concomitant]
  10. VITAMIN E [Concomitant]
  11. DETROL [Concomitant]

REACTIONS (9)
  - ANXIETY [None]
  - BLOOD CHOLESTEROL INCREASED [None]
  - BLOOD PRESSURE INCREASED [None]
  - BLOOD TRIGLYCERIDES INCREASED [None]
  - ELECTROCARDIOGRAM Q WAVES [None]
  - ELECTROCARDIOGRAM ST SEGMENT ABNORMAL [None]
  - INFLUENZA LIKE ILLNESS [None]
  - SUPRAVENTRICULAR TACHYCARDIA [None]
  - VENTRICULAR HYPERTROPHY [None]
